FAERS Safety Report 15931103 (Version 1)
Quarter: 2019Q1

REPORT INFORMATION
  Report Type: Spontaneous
  Country: US (occurrence: US)
  Receive Date: 20190207
  Receipt Date: 20190207
  Transmission Date: 20190417
  Serious: Yes (Hospitalization, Other)
  Sender: FDA-Public Use
  Company Number: None

PATIENT
  Age: 44 Year
  Sex: Female
  Weight: 63.45 kg

DRUGS (14)
  1. BUTRANS [Suspect]
     Active Substance: BUPRENORPHINE
     Indication: SPINAL COLUMN INJURY
     Dosage: ?          QUANTITY:1 PATCH(ES);OTHER FREQUENCY:7 DAYS;?
     Route: 061
     Dates: start: 20181004, end: 20181105
  2. EPIPEN [Concomitant]
     Active Substance: EPINEPHRINE
  3. BELBUCA [Suspect]
     Active Substance: BUPRENORPHINE HYDROCHLORIDE
     Indication: PAIN
     Dosage: ?          QUANTITY:1 BUCAL FILM;OTHER ROUTE:PLACED ON INSIDE OF CHEEK?
     Dates: start: 20190105, end: 20190117
  4. MORPHINE SULFATE IR [Concomitant]
     Active Substance: MORPHINE SULFATE
  5. MAGNESIUM [Concomitant]
     Active Substance: MAGNESIUM
  6. BUTRANS [Suspect]
     Active Substance: BUPRENORPHINE
     Indication: PROCEDURAL FAILURE
     Dosage: ?          QUANTITY:1 PATCH(ES);OTHER FREQUENCY:7 DAYS;?
     Route: 061
     Dates: start: 20181004, end: 20181105
  7. BUTRANS [Suspect]
     Active Substance: BUPRENORPHINE
     Indication: PAIN
     Dosage: ?          QUANTITY:1 PATCH(ES);OTHER FREQUENCY:7 DAYS;?
     Route: 061
     Dates: start: 20181004, end: 20181105
  8. BELBUCA [Suspect]
     Active Substance: BUPRENORPHINE HYDROCHLORIDE
     Indication: SPINAL COLUMN INJURY
     Dosage: ?          QUANTITY:1 BUCAL FILM;OTHER ROUTE:PLACED ON INSIDE OF CHEEK?
     Dates: start: 20190105, end: 20190117
  9. BUTRANS [Suspect]
     Active Substance: BUPRENORPHINE
     Indication: EHLERS-DANLOS SYNDROME
     Dosage: ?          QUANTITY:1 PATCH(ES);OTHER FREQUENCY:7 DAYS;?
     Route: 061
     Dates: start: 20181004, end: 20181105
  10. FLEXERIL [Concomitant]
     Active Substance: CYCLOBENZAPRINE HYDROCHLORIDE
  11. TURMERIC [Concomitant]
     Active Substance: HERBALS\TURMERIC
  12. BELBUCA [Suspect]
     Active Substance: BUPRENORPHINE HYDROCHLORIDE
     Indication: PROCEDURAL FAILURE
     Dosage: ?          QUANTITY:1 BUCAL FILM;OTHER ROUTE:PLACED ON INSIDE OF CHEEK?
     Dates: start: 20190105, end: 20190117
  13. VITAMIN B12 [Concomitant]
     Active Substance: CYANOCOBALAMIN
  14. ZYRTEC [Concomitant]
     Active Substance: CETIRIZINE HYDROCHLORIDE

REACTIONS (6)
  - Cardiac disorder [None]
  - Drug interaction [None]
  - Fall [None]
  - Insurance issue [None]
  - Drug withdrawal syndrome [None]
  - Pain [None]
